FAERS Safety Report 5858081-4 (Version None)
Quarter: 2008Q3

REPORT INFORMATION
  Report Type: 
  Country: None (occurrence: None)
  Receive Date: 20080818
  Receipt Date: 20080425
  Transmission Date: 20090109
  Serious: No
  Sender: FDA-Public Use
  Company Number: TPA2008A00589

PATIENT
  Age: 74 Year
  Sex: Male
  Weight: 67.1324 kg

DRUGS (3)
  1. ROZEREM [Suspect]
     Indication: INSOMNIA
     Dosage: 8 MG, QHS, PER ORAL
     Route: 048
     Dates: start: 20080421
  2. AVODART [Concomitant]
  3. METFORMIN HCL [Concomitant]

REACTIONS (1)
  - INITIAL INSOMNIA [None]
